FAERS Safety Report 5330250-1 (Version None)
Quarter: 2007Q2

REPORT INFORMATION
  Report Type: 
  Country: None (occurrence: None)
  Receive Date: 20070521
  Receipt Date: 20070510
  Transmission Date: 20071010
  Serious: Yes (Hospitalization)
  Sender: FDA-Public Use
  Company Number: AU-SANOFI-SYNTHELABO-A01200704963

PATIENT
  Age: 62 Year
  Sex: Male

DRUGS (5)
  1. STILNOX CR [Suspect]
     Indication: SLEEP DISORDER
     Route: 048
     Dates: start: 20061115, end: 20061215
  2. STILNOX CR [Suspect]
     Indication: ACCIDENTAL OVERDOSE
     Route: 048
     Dates: start: 20061115, end: 20061215
  3. ASPIRIN [Concomitant]
     Indication: DRUG USE FOR UNKNOWN INDICATION
     Dosage: 100 MG
     Route: 048
  4. CARVEDILOL [Concomitant]
     Indication: DRUG USE FOR UNKNOWN INDICATION
     Dosage: 3 MG
     Route: 048
  5. SEREPAX [Concomitant]
     Indication: DRUG USE FOR UNKNOWN INDICATION
     Route: 048

REACTIONS (7)
  - ABNORMAL SLEEP-RELATED EVENT [None]
  - ACCIDENTAL OVERDOSE [None]
  - AMNESIA [None]
  - DISSOCIATIVE FUGUE [None]
  - DRUG ABUSER [None]
  - ROAD TRAFFIC ACCIDENT [None]
  - SLEEP WALKING [None]
